FAERS Safety Report 10655295 (Version 1)
Quarter: 2014Q4

REPORT INFORMATION
  Report Type: Spontaneous
  Country: JP (occurrence: None)
  Receive Date: 20141212
  Receipt Date: 20141212
  Transmission Date: 20150529
  Serious: Yes (Other)
  Sender: FDA-Public Use
  Company Number: SP08638

PATIENT
  Sex: Male

DRUGS (5)
  1. MOVIPREP [Suspect]
     Active Substance: ASCORBIC ACID\POLYETHYLENE GLYCOL 3350\POTASSIUM CHLORIDE\SODIUM ASCORBATE\SODIUM CHLORIDE\SODIUM SULFATE
     Indication: BOWEL PREPARATION
     Dosage: 2 LIT
     Route: 048
     Dates: start: 20141115, end: 20141115
  2. INDIGO DYE [Concomitant]
  3. POTACOL-R [Concomitant]
  4. GASCON [Concomitant]
     Active Substance: DIMETHICONE
  5. XYLOCAINE [Concomitant]
     Active Substance: LIDOCAINE HYDROCHLORIDE

REACTIONS (4)
  - Erythema of eyelid [None]
  - Erythema [None]
  - Blood pressure systolic decreased [None]
  - Urticaria [None]

NARRATIVE: CASE EVENT DATE: 20141115
